FAERS Safety Report 7078979-1 (Version None)
Quarter: 2010Q4

REPORT INFORMATION
  Report Type: 
  Country: None (occurrence: None)
  Receive Date: 20101102
  Receipt Date: 20101026
  Transmission Date: 20110411
  Serious: Yes (Hospitalization)
  Sender: FDA-Public Use
  Company Number: DE-NAPPMUNDI-DEU-2010-0006665

PATIENT
  Sex: Male

DRUGS (1)
  1. PALLADONE [Suspect]
     Indication: PAIN
     Dosage: UNK

REACTIONS (1)
  - LOCALISED OEDEMA [None]
